FAERS Safety Report 10141713 (Version 1)
Quarter: 2014Q2

REPORT INFORMATION
  Report Type: Spontaneous
  Country: US (occurrence: US)
  Receive Date: 20140429
  Receipt Date: 20140429
  Transmission Date: 20141212
  Serious: No
  Sender: FDA-Public Use
  Company Number: US-MYLANLABS-2013S1006503

PATIENT
  Age: 65 Year
  Sex: Male
  Weight: 70.31 kg

DRUGS (2)
  1. LORAZEPAM TABLETS, USP [Suspect]
     Indication: ANXIETY
     Route: 048
     Dates: start: 20130227
  2. CHLORZOXAZONE [Concomitant]
     Indication: MUSCLE RELAXANT THERAPY
     Route: 048

REACTIONS (1)
  - Nightmare [Not Recovered/Not Resolved]
